FAERS Safety Report 9037767 (Version 1)
Quarter: 2013Q1

REPORT INFORMATION
  Report Type: Report from Study
  Country: US (occurrence: US)
  Receive Date: 20130129
  Receipt Date: 20130129
  Transmission Date: 20140127
  Serious: No
  Sender: FDA-Public Use
  Company Number: US-ABBOTT-12P-163-0900085-00

PATIENT
  Sex: Male

DRUGS (7)
  1. HUMIRA 40 MG/0.8 ML PEN [Suspect]
     Indication: CROHN^S DISEASE
     Dates: start: 201110
  2. PREDNISONE [Concomitant]
     Indication: CROHN^S DISEASE
  3. SINGULAIR [Concomitant]
     Indication: ASTHMA
  4. DATRONA [Concomitant]
     Indication: ATTENTION DEFICIT/HYPERACTIVITY DISORDER
  5. ULTRAM [Concomitant]
     Indication: PAIN
  6. BENTYL [Concomitant]
     Indication: PAIN
  7. XANAX [Concomitant]
     Indication: ANXIETY

REACTIONS (2)
  - Large intestinal haemorrhage [Not Recovered/Not Resolved]
  - Drug effect decreased [Not Recovered/Not Resolved]
